FAERS Safety Report 15666551 (Version 1)
Quarter: 2018Q4

REPORT INFORMATION
  Report Type: Spontaneous
  Country: US (occurrence: US)
  Receive Date: 20181128
  Receipt Date: 20181128
  Transmission Date: 20190205
  Serious: No
  Sender: FDA-Public Use
  Company Number: US-ROCHE-2096314

PATIENT
  Age: 47 Year
  Sex: Female
  Weight: 112.59 kg

DRUGS (2)
  1. OCREVUS [Suspect]
     Active Substance: OCRELIZUMAB
     Dosage: 24/NOV/2017
     Route: 042
  2. OCREVUS [Suspect]
     Active Substance: OCRELIZUMAB
     Indication: RELAPSING-REMITTING MULTIPLE SCLEROSIS
     Dosage: ONCE 14, THEN 600 MG EVERY 6 MONTHS ;ONGOING: YES (SECOND INFUSION: 05/JUN/2017)
     Route: 042
     Dates: start: 20170522

REACTIONS (14)
  - Peroneal nerve palsy [Unknown]
  - Balance disorder [Unknown]
  - Limb discomfort [Unknown]
  - Arthralgia [Unknown]
  - Headache [Recovering/Resolving]
  - Back pain [Recovering/Resolving]
  - Fear [Not Recovered/Not Resolved]
  - Asthenia [Unknown]
  - Fatigue [Recovered/Resolved]
  - Fall [Unknown]
  - Vertigo [Recovering/Resolving]
  - Nausea [Recovering/Resolving]
  - Flushing [Recovered/Resolved]
  - Dizziness [Recovering/Resolving]

NARRATIVE: CASE EVENT DATE: 20170522
